FAERS Safety Report 5020579-9 (Version None)
Quarter: 2006Q2

REPORT INFORMATION
  Report Type: 
  Country: None (occurrence: None)
  Receive Date: 20060602
  Receipt Date: 20060518
  Transmission Date: 20061013
  Serious: Yes (Death)
  Sender: FDA-Public Use
  Company Number: 2006000382

PATIENT
  Age: 54 Year
  Sex: Male

DRUGS (6)
  1. ERLOTINIB HCL (TABLET) [Suspect]
     Indication: GLIOBLASTOMA MULTIFORME
     Dosage: 100 MG (QD), ORAL
     Route: 048
     Dates: start: 20051205, end: 20060107
  2. TEMOZOLOMIDE (TEMOZOLOMIDE) (TABLET) [Suspect]
     Indication: GLIOBLASTOMA MULTIFORME
     Dosage: 100 MG (QD), ORAL
     Route: 048
     Dates: start: 20051205, end: 20051227
  3. DEXAMETHASONE [Concomitant]
  4. SULFAMETHOXAZOLE [Concomitant]
  5. LEVAQUIN [Concomitant]
  6. OLANZAPINE [Concomitant]

REACTIONS (6)
  - CONFUSIONAL STATE [None]
  - DIVERTICULAR PERFORATION [None]
  - DIVERTICULUM INTESTINAL [None]
  - FEBRILE NEUTROPENIA [None]
  - GASTROINTESTINAL PERFORATION [None]
  - PANCYTOPENIA [None]
